APPROVED DRUG PRODUCT: TRIMETHOBENZAMIDE HYDROCHLORIDE
Active Ingredient: TRIMETHOBENZAMIDE HYDROCHLORIDE
Strength: 100MG/ML
Dosage Form/Route: INJECTABLE;INJECTION
Application: A088960 | Product #001
Applicant: SMITH AND NEPHEW SOLOPAK DIV SMITH AND NEPHEW
Approved: Apr 4, 1986 | RLD: No | RS: No | Type: DISCN